FAERS Safety Report 9928337 (Version 1)
Quarter: 2014Q1

REPORT INFORMATION
  Report Type: Report from Study
  Country: US (occurrence: US)
  Receive Date: 20140227
  Receipt Date: 20140227
  Transmission Date: 20141002
  Serious: Yes (Hospitalization, Other)
  Sender: FDA-Public Use
  Company Number: US-JNJFOC-20140213859

PATIENT
  Age: 49 Year
  Sex: Female
  Weight: 68.04 kg

DRUGS (1)
  1. REMICADE [Suspect]
     Indication: RHEUMATOID ARTHRITIS
     Route: 042
     Dates: start: 2012, end: 201304

REACTIONS (11)
  - Heart rate increased [Recovered/Resolved]
  - Pericardial calcification [Unknown]
  - Rib fracture [Recovered/Resolved]
  - Fall [Recovered/Resolved]
  - Pleural effusion [Recovered/Resolved]
  - Cholecystectomy [Unknown]
  - Pericardial effusion [Recovered/Resolved]
  - Headache [Recovered/Resolved]
  - Rash [Recovered/Resolved]
  - Memory impairment [Recovered/Resolved]
  - Pain [Unknown]
